FAERS Safety Report 16360854 (Version 1)
Quarter: 2019Q2

REPORT INFORMATION
  Report Type: Spontaneous
  Country: FR (occurrence: FR)
  Receive Date: 20190528
  Receipt Date: 20190528
  Transmission Date: 20190711
  Serious: Yes (Life-Threatening, Other)
  Sender: FDA-Public Use
  Company Number: FR-AUROBINDO-AUR-APL-2019-028147

PATIENT

DRUGS (2)
  1. MIRTAZAPINE ARROW FILM-COATED TABLET 15 MG [Suspect]
     Active Substance: MIRTAZAPINE
     Indication: DEPRESSION
     Dosage: 15 MILLIGRAM, DAILY
     Route: 048
     Dates: start: 20190413, end: 20190416
  2. TEGRETOL [Suspect]
     Active Substance: CARBAMAZEPINE
     Indication: DEPRESSION
     Dosage: 2 DOSAGE FORM, DAILY
     Route: 048
     Dates: start: 20190329, end: 20190417

REACTIONS (6)
  - Rash [Not Recovered/Not Resolved]
  - Dysphagia [Not Recovered/Not Resolved]
  - Erythema [Not Recovered/Not Resolved]
  - Blister [Not Recovered/Not Resolved]
  - Toxic epidermal necrolysis [Not Recovered/Not Resolved]
  - Oedema [Not Recovered/Not Resolved]

NARRATIVE: CASE EVENT DATE: 20190416
